FAERS Safety Report 7312908-8 (Version None)
Quarter: 2011Q1

REPORT INFORMATION
  Report Type: 
  Country: None (occurrence: None)
  Receive Date: 20110224
  Receipt Date: 20110218
  Transmission Date: 20110831
  Serious: Yes (Hospitalization)
  Sender: FDA-Public Use
  Company Number: FR-MERCK-1102FRA00006

PATIENT
  Age: 56 Year
  Sex: Male
  Weight: 87 kg

DRUGS (3)
  1. BECLOMETHASONE DIPROPIONATE [Concomitant]
     Indication: RESPIRATORY FAILURE
     Route: 055
     Dates: start: 20100101
  2. JANUMET [Suspect]
     Indication: TYPE 2 DIABETES MELLITUS
     Route: 048
     Dates: start: 20101002, end: 20101007
  3. TIOTROPIUM BROMIDE [Concomitant]
     Indication: RESPIRATORY FAILURE
     Route: 055
     Dates: start: 20100101

REACTIONS (5)
  - BLOOD BILIRUBIN INCREASED [None]
  - ALANINE AMINOTRANSFERASE INCREASED [None]
  - ASPARTATE AMINOTRANSFERASE INCREASED [None]
  - CHEST PAIN [None]
  - GAMMA-GLUTAMYLTRANSFERASE INCREASED [None]
